FAERS Safety Report 7080767-7 (Version None)
Quarter: 2010Q4

REPORT INFORMATION
  Report Type: 
  Country: None (occurrence: None)
  Receive Date: 20101103
  Receipt Date: 20101102
  Transmission Date: 20110411
  Serious: Yes (Death, Hospitalization)
  Sender: FDA-Public Use
  Company Number: IT-WYE-G06419910

PATIENT
  Sex: Male
  Weight: 60 kg

DRUGS (4)
  1. TORISEL [Suspect]
     Indication: ACUTE MYELOID LEUKAEMIA
     Dates: start: 20100202, end: 20100216
  2. TORISEL [Suspect]
     Dates: start: 20100503, end: 20100503
  3. TORISEL [Suspect]
     Dates: start: 20100531, end: 20100531
  4. EVOLTRA [Concomitant]
     Dates: start: 20100201, end: 20100205

REACTIONS (2)
  - DISEASE PROGRESSION [None]
  - INFECTION [None]
